FAERS Safety Report 6172043-1 (Version None)
Quarter: 2009Q2

REPORT INFORMATION
  Report Type: 
  Country: None (occurrence: None)
  Receive Date: 20090424
  Receipt Date: 20090129
  Transmission Date: 20091009
  Serious: No
  Sender: FDA-Public Use
  Company Number: ALL1-2009-00221

PATIENT
  Sex: Male

DRUGS (1)
  1. VYVANSE [Suspect]
     Dosage: 50 MG, OTHER (TWO 50 MG DAILY), ORAL
     Route: 048

REACTIONS (2)
  - DRUG INEFFECTIVE [None]
  - OVERDOSE [None]
